FAERS Safety Report 6924325-0 (Version None)
Quarter: 2010Q3

REPORT INFORMATION
  Report Type: 
  Country: None (occurrence: None)
  Receive Date: 20100811
  Receipt Date: 20100811
  Transmission Date: 20110219
  Serious: Yes (Other)
  Sender: FDA-Public Use
  Company Number: None

PATIENT
  Age: 70 Year
  Sex: Female
  Weight: 65.318 kg

DRUGS (2)
  1. NORVASC [Suspect]
     Indication: MYOCARDIAL INFARCTION
     Dosage: 1 PILL PER DAY PO
     Route: 048
     Dates: start: 20100710, end: 20100803
  2. COREG [Suspect]
     Indication: MYOCARDIAL INFARCTION
     Dosage: 1 PILL PER DAY PO
     Route: 048
     Dates: start: 20100710, end: 20100730

REACTIONS (5)
  - ARTHRALGIA [None]
  - BONE PAIN [None]
  - HYPOAESTHESIA [None]
  - OEDEMA PERIPHERAL [None]
  - PAIN IN EXTREMITY [None]
